FAERS Safety Report 4664984-9 (Version None)
Quarter: 2005Q2

REPORT INFORMATION
  Report Type: 
  Country: None (occurrence: None)
  Receive Date: 20050517
  Receipt Date: 20050509
  Transmission Date: 20051028
  Serious: Yes (Disabling)
  Sender: FDA-Public Use
  Company Number: US015080

PATIENT
  Age: 42 Year
  Sex: Female
  Weight: 60 kg

DRUGS (11)
  1. ACTIQ [Suspect]
     Indication: ANKYLOSING SPONDYLITIS
     Dosage: 400 UG Q4HR BUCCAL
     Route: 002
     Dates: start: 20041001, end: 20050101
  2. ACTIQ [Suspect]
     Indication: ANKYLOSING SPONDYLITIS
     Dates: start: 20050301, end: 20050415
  3. ACTIQ [Suspect]
     Indication: PAIN
     Dates: start: 20050301, end: 20050415
  4. DURAGESIC-100 [Suspect]
     Indication: ANKYLOSING SPONDYLITIS
     Dosage: 1 UNIT Q72HR TRANSDERMAL
     Route: 062
     Dates: start: 20041001, end: 20050101
  5. DURAGESIC-100 [Suspect]
     Indication: PAIN
     Dosage: 1 UNIT Q72HR TRANSDERMAL
     Route: 062
     Dates: start: 20041001, end: 20050101
  6. DURAGESIC-100 [Suspect]
     Indication: SPONDYLITIS
     Dosage: 1 UNIT TRANSDERMAL
     Route: 062
     Dates: start: 20050301
  7. ENBREL [Concomitant]
  8. RIVOTRIL [Concomitant]
  9. EFFEXOR [Concomitant]
  10. BI-PROFENID [Concomitant]
  11. CORTANCYL [Concomitant]

REACTIONS (4)
  - APHONIA [None]
  - DYSPHONIA [None]
  - LARYNGEAL OEDEMA [None]
  - VOCAL CORD THICKENING [None]
